FAERS Safety Report 17133980 (Version 1)
Quarter: 2019Q4

REPORT INFORMATION
  Report Type: Spontaneous
  Country: US (occurrence: US)
  Receive Date: 20191209
  Receipt Date: 20191209
  Transmission Date: 20200122
  Serious: Yes (Disabling)
  Sender: FDA-Public Use
  Company Number: None

PATIENT
  Age: 30 Month
  Sex: Male

DRUGS (8)
  1. APIDRA [Concomitant]
     Active Substance: INSULIN GLULISINE
  2. ZOLOFT [Concomitant]
     Active Substance: SERTRALINE HYDROCHLORIDE
  3. LORATADINE. [Concomitant]
     Active Substance: LORATADINE
  4. INTUNIV [Concomitant]
     Active Substance: GUANFACINE HYDROCHLORIDE
  5. MIRALAX [Suspect]
     Active Substance: POLYETHYLENE GLYCOL 3350
     Indication: CONSTIPATION
     Route: 048
     Dates: start: 20090330, end: 20100210
  6. DEXCOM [Concomitant]
  7. STRATTERA [Concomitant]
     Active Substance: ATOMOXETINE HYDROCHLORIDE
  8. LEVEMIR [Concomitant]
     Active Substance: INSULIN DETEMIR

REACTIONS (11)
  - Anger [None]
  - Panic attack [None]
  - Learning disorder [None]
  - Oppositional defiant disorder [None]
  - Growth retardation [None]
  - Suicide attempt [None]
  - Aggression [None]
  - Tic [None]
  - Autism spectrum disorder [None]
  - Attention deficit/hyperactivity disorder [None]
  - Obsessive-compulsive disorder [None]

NARRATIVE: CASE EVENT DATE: 20090330
